FAERS Safety Report 7553098-6 (Version None)
Quarter: 2011Q2

REPORT INFORMATION
  Report Type: 
  Country: None (occurrence: None)
  Receive Date: 20110616
  Receipt Date: 20090513
  Transmission Date: 20111010
  Serious: Yes (Other)
  Sender: FDA-Public Use
  Company Number: US-BAYER-200823297NA

PATIENT
  Age: 77 Year
  Sex: Male

DRUGS (69)
  1. MAGNEVIST [Suspect]
     Indication: NUCLEAR MAGNETIC RESONANCE IMAGING
     Dosage: 40 ML, ONCE
     Dates: start: 20060519, end: 20060519
  2. MAGNEVIST [Suspect]
     Dosage: UNK
     Dates: start: 20060822, end: 20060822
  3. MAGNEVIST [Suspect]
     Dosage: UNK
     Dates: start: 20060824, end: 20060824
  4. MAGNEVIST [Suspect]
  5. GADOLINIUM IN UNSPECIFIED DRUG [Suspect]
     Indication: NUCLEAR MAGNETIC RESONANCE IMAGING
     Dosage: UNK
     Dates: start: 20041223, end: 20041223
  6. METOPROLOL TARTRATE [Concomitant]
     Route: 048
  7. DILTIAZEM [Concomitant]
  8. INSULIN [Concomitant]
  9. ZESTRIL [Concomitant]
     Route: 048
  10. CARDIAZEM [Concomitant]
  11. VITAMIN B COMPLEX WITH C [Concomitant]
     Route: 048
  12. CIPROFLOXACIN [Concomitant]
     Route: 048
  13. VITAMIN K TAB [Concomitant]
  14. RENAGEL [Concomitant]
     Route: 048
  15. OPTIMARK [Suspect]
     Indication: ANGIOGRAM
  16. EPOGEN [Concomitant]
     Dosage: Q WEEK ON FRIDAY
     Route: 058
  17. LISINOPRIL [Concomitant]
     Route: 048
  18. NITRO-BID [Concomitant]
     Route: 048
  19. METOPROLOL TARTRATE [Concomitant]
     Route: 048
  20. NITROGLYCERIN [Concomitant]
     Route: 060
  21. TERAZOSIN HCL [Concomitant]
     Dosage: 5MG Q AM, 2 MG Q PM
  22. MEVACOR [Concomitant]
  23. SILVER NITRATE [Concomitant]
     Route: 061
     Dates: start: 20000327
  24. METOPROLOL TARTRATE [Concomitant]
  25. LOVASTATIN [Concomitant]
     Route: 048
  26. TYLENOL PM [Concomitant]
  27. METOPROLOL TARTRATE [Concomitant]
     Route: 048
  28. AVELOX [Concomitant]
     Dosage: 10  DAYS
     Route: 048
     Dates: start: 20060327
  29. LASIX [Concomitant]
     Route: 048
  30. LOVASTATIN [Concomitant]
     Route: 048
  31. PROCRIT [Concomitant]
     Dosage: Q 2 WEEKS
  32. PRINIVIL [Concomitant]
  33. PHOSLO [Concomitant]
     Dosage: 2 CAPSULES
  34. ALBUTEROL SULFATE AUTOHALER [Concomitant]
     Route: 055
     Dates: start: 20060327
  35. ACETIC ACID [Concomitant]
     Dosage: Q 8 H
     Route: 061
     Dates: start: 20000405
  36. COUMADIN [Concomitant]
  37. OXYCODONE HCL AND ACETAMINOPHEN [Concomitant]
     Dosage: ENDOCET 5/325MG
  38. OMNISCAN [Suspect]
     Indication: ANGIOGRAM
  39. MULTIHANCE [Suspect]
     Indication: ANGIOGRAM
  40. PEPCID [Concomitant]
     Route: 048
  41. FERROUS SULFATE TAB [Concomitant]
  42. PLAVIX [Concomitant]
     Route: 048
  43. BIAXIN [Concomitant]
     Dosage: ^PHARM TO ADJUST FOR CRI^ 14 DAYS
  44. ROCEPHIN [Concomitant]
     Dosage: 2 G
  45. ACETYLSALICYLATE SODIUM [Concomitant]
  46. PREDNISONE [Concomitant]
  47. PROHANCE [Suspect]
     Indication: ANGIOGRAM
  48. PLAVIX [Concomitant]
     Route: 048
  49. ANCEF [Concomitant]
     Dosage: Q 24 HOURS
     Route: 042
  50. KAYEXALATE [Concomitant]
  51. NIFEDIPINE [Concomitant]
     Route: 048
  52. FOLIC ACID [Concomitant]
     Dosage: 1 TAB
     Route: 048
  53. VANCOMYCIN [Concomitant]
     Dosage: 6 WEEKS
     Dates: start: 20060501, end: 20060715
  54. VICODIN [Concomitant]
  55. OMNIPAQUE 140 [Concomitant]
     Route: 042
     Dates: start: 20060215, end: 20060215
  56. MAGNEVIST [Suspect]
     Indication: ANGIOGRAM
     Dosage: UNK
     Dates: start: 20060216, end: 20060216
  57. NEPHROCAPS [Concomitant]
     Dosage: 1 TABLET
     Route: 048
     Dates: start: 19980901
  58. HYTRIN [Concomitant]
     Route: 048
  59. HYTRIN [Concomitant]
  60. PRINIVIL [Concomitant]
  61. ATROVENT [Concomitant]
     Route: 055
  62. CARDIAZEM [Concomitant]
     Route: 048
  63. ADALAT [Concomitant]
  64. DILACOR XR [Concomitant]
     Route: 048
     Dates: start: 19980901
  65. LOPRESSOR [Concomitant]
  66. KEFLEX [Concomitant]
     Dosage: 1 TAB QID 10 DAYS
     Route: 048
     Dates: start: 20010725, end: 20010803
  67. PERCOCET [Concomitant]
     Dosage: 1 1/2 TO 2 TABS Q 24 H
  68. LIDEX [Concomitant]
     Indication: RASH PRURITIC
     Route: 061
  69. WARFARIN SODIUM [Concomitant]

REACTIONS (26)
  - JOINT CONTRACTURE [None]
  - FIBROSIS [None]
  - JOINT RANGE OF MOTION DECREASED [None]
  - HYPOAESTHESIA [None]
  - MUSCULOSKELETAL STIFFNESS [None]
  - DUPUYTREN'S CONTRACTURE [None]
  - ONYCHOMADESIS [None]
  - SKIN EXFOLIATION [None]
  - PAIN [None]
  - SKIN INDURATION [None]
  - ERYTHEMA [None]
  - MUSCLE CONTRACTURE [None]
  - JOINT SWELLING [None]
  - SKIN TIGHTNESS [None]
  - SKIN DISORDER [None]
  - SKIN WRINKLING [None]
  - RASH [None]
  - SKIN HYPERTROPHY [None]
  - ISCHAEMIC ULCER [None]
  - NEPHROGENIC SYSTEMIC FIBROSIS [None]
  - MUSCULAR WEAKNESS [None]
  - MOBILITY DECREASED [None]
  - MENTAL DISORDER [None]
  - OEDEMA PERIPHERAL [None]
  - SKIN NECROSIS [None]
  - DEPRESSION [None]
